FAERS Safety Report 7437753-4 (Version None)
Quarter: 2011Q2

REPORT INFORMATION
  Report Type: 
  Country: None (occurrence: None)
  Receive Date: 20110426
  Receipt Date: 20110419
  Transmission Date: 20111010
  Serious: Yes (Disabling, Other)
  Sender: FDA-Public Use
  Company Number: GB-PFIZER INC-2011085892

PATIENT
  Age: 45 Year
  Sex: Female
  Weight: 78 kg

DRUGS (4)
  1. PREGABALIN [Suspect]
     Indication: ANXIETY
     Dosage: 150 MG, 2X/DAY
     Route: 048
     Dates: start: 20090114, end: 20110329
  2. PARACETAMOL [Concomitant]
     Indication: HEADACHE
     Dosage: 500 MG, AS NEEDED
     Route: 048
  3. SUMATRIPTAN SUCCINATE [Concomitant]
     Indication: MIGRAINE
     Dosage: 50 MG, AS NEEDED
     Route: 048
     Dates: start: 19960301
  4. DOSULEPIN [Concomitant]
     Indication: DEPRESSION
     Dosage: 75 MG, 1X/DAY
     Route: 048
     Dates: start: 20040801

REACTIONS (4)
  - SENSORY DISTURBANCE [None]
  - ANXIETY [None]
  - PARAESTHESIA [None]
  - CONDITION AGGRAVATED [None]
